FAERS Safety Report 4334952-5 (Version None)
Quarter: 2004Q1

REPORT INFORMATION
  Report Type: 
  Country: None (occurrence: None)
  Receive Date: 20040329
  Receipt Date: 20040123
  Transmission Date: 20041129
  Serious: No
  Sender: FDA-Public Use
  Company Number: 04P-163-0248581-00

PATIENT
  Sex: Female

DRUGS (7)
  1. HUMIRA [Suspect]
     Indication: RHEUMATOID ARTHRITIS
     Dosage: SEE IMAGE
     Route: 058
     Dates: start: 20030921, end: 20031201
  2. HUMIRA [Suspect]
     Indication: RHEUMATOID ARTHRITIS
     Dosage: SEE IMAGE
     Route: 058
     Dates: start: 20031220, end: 20040101
  3. METHOTREXATE [Concomitant]
  4. CELECOXIB [Concomitant]
  5. INFLIXIMAB [Concomitant]
  6. HYDROCHLOROQUINE PHOSPHATE [Concomitant]
  7. LEFLUNOMIDE [Concomitant]

REACTIONS (1)
  - DRUG INEFFECTIVE [None]
